FAERS Safety Report 19286573 (Version 1)
Quarter: 2021Q2

REPORT INFORMATION
  Report Type: Other
  Country: JP (occurrence: JP)
  Receive Date: 20210521
  Receipt Date: 20210521
  Transmission Date: 20210717
  Serious: Yes (Other)
  Sender: FDA-Public Use
  Company Number: JP-ROCHE-2801229

PATIENT
  Age: 68 Year
  Sex: Female

DRUGS (11)
  1. PERJETA [Suspect]
     Active Substance: PERTUZUMAB
     Route: 041
  2. HERCEPTIN [Suspect]
     Active Substance: TRASTUZUMAB
     Indication: SALIVARY GLAND CANCER
     Dosage: DOSAGE IS UNCERTAIN.?9 CYCLES INCOMBINATION?4 CYCLES OF TMAB MONOTHERAPY
     Route: 041
  3. DOCETAXEL. [Concomitant]
     Active Substance: DOCETAXEL
     Indication: SALIVARY GLAND CANCER
     Dosage: DOSAGE IS UNCERTAIN.
     Route: 041
  4. TRASTUZUMAB EMTANSINE [Concomitant]
     Active Substance: ADO-TRASTUZUMAB EMTANSINE
     Dosage: 6 CYCLES
  5. ERIBULIN [Concomitant]
     Active Substance: ERIBULIN
     Dosage: DAYS 1 AND 3
  6. ERIBULIN [Concomitant]
     Active Substance: ERIBULIN
     Dosage: DAYS 1 AND 3
  7. HERCEPTIN [Suspect]
     Active Substance: TRASTUZUMAB
     Route: 041
  8. PERJETA [Suspect]
     Active Substance: PERTUZUMAB
     Indication: SALIVARY GLAND CANCER
     Dosage: DOSAGE IS UNCERTAIN.?20 CYCLES
     Route: 041
  9. PERJETA [Suspect]
     Active Substance: PERTUZUMAB
     Dosage: 20 CYCLES
     Route: 041
  10. HERCEPTIN [Suspect]
     Active Substance: TRASTUZUMAB
     Route: 041
  11. NAB?PACLITAXEL [Concomitant]
     Active Substance: PACLITAXEL
     Dosage: 9 CYCLES

REACTIONS (4)
  - Neuropathy peripheral [Unknown]
  - No adverse event [Unknown]
  - Off label use [Unknown]
  - Electrocardiogram QT prolonged [Unknown]
